FAERS Safety Report 5703400-2 (Version None)
Quarter: 2008Q2

REPORT INFORMATION
  Report Type: 
  Country: None (occurrence: None)
  Receive Date: 20080411
  Receipt Date: 20080401
  Transmission Date: 20081010
  Serious: Yes (Other)
  Sender: FDA-Public Use
  Company Number: US-PFIZER INC-2008028771

PATIENT
  Sex: Male
  Weight: 108.9 kg

DRUGS (2)
  1. DILANTIN [Suspect]
     Dates: start: 20080320, end: 20080331
  2. ALL OTHER THERAPEUTIC PRODUCTS [Concomitant]

REACTIONS (4)
  - ABASIA [None]
  - DIZZINESS [None]
  - DRUG LEVEL INCREASED [None]
  - FALL [None]
